FAERS Safety Report 9307568 (Version 1)
Quarter: 2013Q2

REPORT INFORMATION
  Report Type: Spontaneous
  Country: US (occurrence: US)
  Receive Date: 20130524
  Receipt Date: 20130524
  Transmission Date: 20140414
  Serious: No
  Sender: FDA-Public Use
  Company Number: US-009507513-1305USA013366

PATIENT
  Sex: Female

DRUGS (1)
  1. AZASITE [Suspect]
     Indication: BACTERIAL INFECTION
     Dosage: 1 GTT, QPM
     Route: 047
     Dates: start: 20130429

REACTIONS (3)
  - Eye infection bacterial [Not Recovered/Not Resolved]
  - Drug dose omission [Unknown]
  - Medication error [Unknown]
